FAERS Safety Report 6585582-6 (Version None)
Quarter: 2010Q1

REPORT INFORMATION
  Report Type: 
  Country: None (occurrence: None)
  Receive Date: 20100201
  Receipt Date: 20090925
  Transmission Date: 20100710
  Serious: Yes (Hospitalization)
  Sender: FDA-Public Use
  Company Number: 8052665

PATIENT
  Sex: Female
  Weight: 59 kg

DRUGS (6)
  1. KEPPRA [Suspect]
     Indication: CONVULSION
  2. REBIF [Suspect]
     Indication: MULTIPLE SCLEROSIS
     Dosage: 44 UG 3X/WEEK SUBCUTANEOUS : 44 UG 3X/WEEK SUBCUTANEOUS
     Route: 058
     Dates: start: 20061117, end: 20070903
  3. REBIF [Suspect]
     Indication: MULTIPLE SCLEROSIS
     Dosage: 44 UG 3X/WEEK SUBCUTANEOUS : 44 UG 3X/WEEK SUBCUTANEOUS
     Route: 058
     Dates: start: 20080201
  4. PROVIGIL [Suspect]
  5. CARBATROL [Suspect]
  6. IBUPROFEN [Concomitant]

REACTIONS (3)
  - DEPRESSION [None]
  - STRESS [None]
  - SUICIDE ATTEMPT [None]
